FAERS Safety Report 8394900-8 (Version None)
Quarter: 2012Q2

REPORT INFORMATION
  Report Type: 
  Country: None (occurrence: None)
  Receive Date: 20120530
  Receipt Date: 20110420
  Transmission Date: 20120825
  Serious: No
  Sender: FDA-Public Use
  Company Number: US-GLAXOSMITHKLINE-A0924456A

PATIENT
  Age: 46 Year
  Sex: Female
  Weight: 97.1 kg

DRUGS (11)
  1. FERROUS SULFATE TAB [Concomitant]
     Dosage: 325MG UNKNOWN
  2. TRACLEER [Concomitant]
     Dosage: 125MG TWICE PER DAY
  3. LASIX [Concomitant]
     Dosage: 80MG TWICE PER DAY
  4. SYNTHROID [Concomitant]
     Dosage: 112MCG PER DAY
  5. LORTAB [Concomitant]
     Dosage: 5MG UNKNOWN
  6. SPIRONOLACTONE [Concomitant]
     Dosage: 50MG PER DAY
  7. ASPIRIN [Concomitant]
     Dosage: 81MG PER DAY
  8. FLOLAN [Suspect]
     Indication: PULMONARY ARTERIAL HYPERTENSION
     Dosage: 29NGKM UNKNOWN
     Route: 065
     Dates: start: 19980501
  9. ATIVAN [Suspect]
     Indication: PRODUCT USED FOR UNKNOWN INDICATION
     Dosage: .5MG UNKNOWN
     Route: 065
  10. ALBUTEROL [Concomitant]
     Dosage: 1PUFF UNKNOWN
  11. POTASSIUM CHLORIDE [Concomitant]
     Dosage: 20MEQ TWICE PER DAY

REACTIONS (2)
  - OEDEMA PERIPHERAL [None]
  - NASAL CONGESTION [None]
